FAERS Safety Report 5021061-5 (Version None)
Quarter: 2006Q2

REPORT INFORMATION
  Report Type: 
  Country: None (occurrence: None)
  Receive Date: 20060608
  Receipt Date: 20060602
  Transmission Date: 20061013
  Serious: Yes (Disabling)
  Sender: FDA-Public Use
  Company Number: DE-JNJFOC-20060501741

PATIENT
  Age: 77 Year
  Sex: Male

DRUGS (4)
  1. TAVANIC [Suspect]
     Indication: EPIDIDYMITIS
     Route: 048
     Dates: start: 20060317, end: 20060323
  2. TAVANIC [Suspect]
     Indication: ORCHITIS
     Route: 048
     Dates: start: 20060317, end: 20060323
  3. NORVASC [Concomitant]
     Indication: HYPERTENSION
     Route: 048
  4. METOBETA [Concomitant]
     Indication: HYPERTENSION
     Route: 048

REACTIONS (1)
  - VISUAL FIELD DEFECT [None]
